FAERS Safety Report 5304329-4 (Version None)
Quarter: 2007Q2

REPORT INFORMATION
  Report Type: 
  Country: None (occurrence: None)
  Receive Date: 20070423
  Receipt Date: 20070413
  Transmission Date: 20071010
  Serious: Yes (Hospitalization)
  Sender: FDA-Public Use
  Company Number: PHEH2007US05118

PATIENT
  Age: 13 Year
  Sex: Female

DRUGS (2)
  1. ZOMETA [Suspect]
     Indication: OSTEOPOROSIS
     Dosage: 4 MG, UNK
     Route: 042
     Dates: start: 20070405, end: 20070405
  2. IRON [Concomitant]

REACTIONS (4)
  - BRADYCARDIA [None]
  - ORTHOSTATIC HYPOTENSION [None]
  - PRURITUS [None]
  - RASH ERYTHEMATOUS [None]
